FAERS Safety Report 6445613-0 (Version None)
Quarter: 2009Q4

REPORT INFORMATION
  Report Type: 
  Country: None (occurrence: None)
  Receive Date: 20091118
  Receipt Date: 20091118
  Transmission Date: 20100525
  Serious: No
  Sender: FDA-Public Use
  Company Number: None

PATIENT
  Sex: Female
  Weight: 90.7194 kg

DRUGS (1)
  1. LEVAQUIN [Suspect]
     Indication: SINUSITIS
     Dosage: 500 MG ONE DAILY PO
     Route: 048
     Dates: start: 20090929

REACTIONS (4)
  - DYSURIA [None]
  - PAIN [None]
  - UNEVALUABLE EVENT [None]
  - VISION BLURRED [None]
